FAERS Safety Report 26109250 (Version 1)
Quarter: 2025Q4

REPORT INFORMATION
  Report Type: Spontaneous
  Country: US (occurrence: None)
  Receive Date: 20251126
  Receipt Date: 20251126
  Transmission Date: 20260119
  Serious: Yes (Hospitalization)
  Sender: FDA-CTU
  Company Number: None

PATIENT
  Age: 87 Year
  Sex: Female

DRUGS (15)
  1. LENALIDOMIDE [Suspect]
     Active Substance: LENALIDOMIDE
     Indication: Plasma cell myeloma
     Dosage: 10 MG DAILY ORAL ?
     Route: 048
     Dates: start: 20250404
  2. SPIRONOLACTONE [Concomitant]
     Active Substance: SPIRONOLACTONE
  3. IBANDRONATE SODIUM [Concomitant]
     Active Substance: IBANDRONATE SODIUM
  4. PANTOPRAZOLE [Concomitant]
     Active Substance: PANTOPRAZOLE
  5. NIFEDIPINE [Concomitant]
     Active Substance: NIFEDIPINE
  6. VELCADE [Concomitant]
     Active Substance: BORTEZOMIB
  7. GABAPENTIN [Concomitant]
     Active Substance: GABAPENTIN
  8. GLIPIZIDE [Concomitant]
     Active Substance: GLIPIZIDE
  9. CLONIDINE [Concomitant]
     Active Substance: CLONIDINE
  10. METOPROLOL [Concomitant]
     Active Substance: METOPROLOL
  11. HYDROCHLOROTHIAZIDE [Concomitant]
     Active Substance: HYDROCHLOROTHIAZIDE
  12. LINZESS [Concomitant]
     Active Substance: LINACLOTIDE
  13. PRAVASTATIN [Concomitant]
     Active Substance: PRAVASTATIN
  14. DEXAMETHASONE [Concomitant]
     Active Substance: DEXAMETHASONE
  15. HYDRALAZINE [Concomitant]
     Active Substance: HYDRALAZINE HYDROCHLORIDE

REACTIONS (1)
  - Pneumonia [None]

NARRATIVE: CASE EVENT DATE: 20251109
